FAERS Safety Report 8932074 (Version 1)
Quarter: 2012Q4

REPORT INFORMATION
  Report Type: 
  Country: BR (occurrence: BR)
  Receive Date: 20121128
  Receipt Date: 20121128
  Transmission Date: 20130627
  Serious: Yes (Hospitalization, Other)
  Sender: FDA-Public Use
  Company Number: BR-PFIZER INC-2012294845

PATIENT
  Age: 54 Year
  Sex: Female
  Weight: 55 kg

DRUGS (3)
  1. EFEXOR XR [Suspect]
     Dosage: one capsule of 75mg and one capsule of 150mg, unspecified frequency
     Route: 048
  2. SEROQUEL XR [Concomitant]
     Dosage: 300 (units unknown); UNK
  3. REMERON [Concomitant]
     Dosage: 45 mg, UNK

REACTIONS (3)
  - Bipolar disorder [Unknown]
  - Panic disorder [Unknown]
  - Personality disorder [Unknown]
